FAERS Safety Report 21185473 (Version 1)
Quarter: 2022Q3

REPORT INFORMATION
  Report Type: Spontaneous
  Country: JP (occurrence: JP)
  Receive Date: 20220808
  Receipt Date: 20220808
  Transmission Date: 20221027
  Serious: Yes (Other)
  Sender: FDA-Public Use
  Company Number: JP-GLAXOSMITHKLINE-JP2022JPN113941

PATIENT

DRUGS (7)
  1. FLOLAN [Suspect]
     Active Substance: EPOPROSTENOL SODIUM
     Indication: Heritable pulmonary arterial hypertension
     Dosage: UNK, CO
     Route: 041
  2. FLOLAN [Suspect]
     Active Substance: EPOPROSTENOL SODIUM
     Dosage: 65 NG/KG, CO
     Route: 041
  3. FLOLAN [Suspect]
     Active Substance: EPOPROSTENOL SODIUM
     Dosage: 80 NG/KG, CO
     Route: 041
  4. SELEXIPAG [Suspect]
     Active Substance: SELEXIPAG
     Indication: Heritable pulmonary arterial hypertension
     Dosage: 0.4 MG, 1D
  5. SELEXIPAG [Suspect]
     Active Substance: SELEXIPAG
     Dosage: 3.2 MG, 1D
  6. SELEXIPAG [Suspect]
     Active Substance: SELEXIPAG
     Dosage: 2.4 MG, 1D
  7. SELEXIPAG [Suspect]
     Active Substance: SELEXIPAG
     Dosage: 2 MG, 1D

REACTIONS (7)
  - Hyperthyroidism [Recovered/Resolved]
  - Basedow^s disease [Unknown]
  - Pulmonary hypertension [Recovering/Resolving]
  - Malaise [Unknown]
  - Decreased appetite [Unknown]
  - Weight decreased [Unknown]
  - Product use issue [Unknown]
